FAERS Safety Report 25541775 (Version 1)
Quarter: 2025Q3

REPORT INFORMATION
  Report Type: Spontaneous
  Country: CN (occurrence: CN)
  Receive Date: 20250711
  Receipt Date: 20250711
  Transmission Date: 20251021
  Serious: Yes (Hospitalization, Other)
  Sender: HISUN PHARMACEUTICALS USA INC
  Company Number: CN-Hisun Pharmaceuticals USA Inc.-000501

PATIENT
  Age: 1 Year
  Sex: Female
  Weight: 11 kg

DRUGS (6)
  1. DACTINOMYCIN [Suspect]
     Active Substance: DACTINOMYCIN
     Indication: Nephroblastoma
     Dosage: 15 UG/KG
     Route: 042
     Dates: start: 20250606, end: 20250610
  2. VINCRISTINE [Suspect]
     Active Substance: VINCRISTINE
     Indication: Nephroblastoma
     Dosage: 1.5 MG/M2
     Route: 042
     Dates: start: 20250606, end: 20250606
  3. PIRARUBICIN HYDROCHLORIDE [Suspect]
     Active Substance: PIRARUBICIN HYDROCHLORIDE
     Indication: Nephroblastoma
     Dosage: 50 MG/M2
     Route: 042
     Dates: start: 20250606, end: 20250606
  4. DACTINOMYCIN [Suspect]
     Active Substance: DACTINOMYCIN
     Indication: Renal cancer stage III
     Dates: start: 20250606, end: 20250610
  5. VINCRISTINE [Suspect]
     Active Substance: VINCRISTINE
     Indication: Renal cancer stage III
     Route: 042
     Dates: start: 20250606, end: 20250606
  6. PIRARUBICIN HYDROCHLORIDE [Suspect]
     Active Substance: PIRARUBICIN HYDROCHLORIDE
     Indication: Renal cancer stage III
     Dosage: 50 MG/M2
     Route: 042
     Dates: start: 20250606, end: 20250606

REACTIONS (2)
  - Myelosuppression [Recovered/Resolved]
  - Febrile infection [Unknown]

NARRATIVE: CASE EVENT DATE: 20250617
